FAERS Safety Report 8924011 (Version 1)
Quarter: 2012Q4

REPORT INFORMATION
  Report Type: Report from Study
  Country: US (occurrence: US)
  Receive Date: 20121126
  Receipt Date: 20121126
  Transmission Date: 20130627
  Serious: Yes (Life-Threatening, Hospitalization)
  Sender: FDA-Public Use
  Company Number: US-UCBSA-070932

PATIENT
  Age: 19 Year
  Sex: Male
  Weight: 57.1 kg

DRUGS (9)
  1. LACOSAMIDE [Suspect]
     Indication: EPILEPSY
     Route: 048
     Dates: start: 20120724, end: 20120729
  2. LACOSAMIDE [Suspect]
     Indication: EPILEPSY
     Dosage: 200 MG MORNING DOSE/ 100 MG EVENING DOSE
     Route: 048
     Dates: start: 20120723, end: 20120723
  3. LACOSAMIDE [Suspect]
     Indication: EPILEPSY
     Route: 048
     Dates: start: 20120509, end: 20120722
  4. LACOSAMIDE [Suspect]
     Indication: EPILEPSY
     Route: 048
     Dates: start: 20120130, end: 20120509
  5. LACOSAMIDE [Suspect]
     Indication: EPILEPSY
     Route: 048
     Dates: start: 20110816, end: 20120130
  6. LACOSAMIDE [Suspect]
     Indication: EPILEPSY
     Route: 048
     Dates: start: 20101228, end: 20110815
  7. VITAMIN B6 [Concomitant]
     Indication: CONVULSION
     Route: 048
     Dates: start: 2011
  8. MAGNESIUM [Concomitant]
     Route: 048
     Dates: start: 2011
  9. VITAMIN D [Concomitant]
     Route: 048
     Dates: start: 2011

REACTIONS (1)
  - Grand mal convulsion [Recovered/Resolved]
